FAERS Safety Report 4656681-0 (Version None)
Quarter: 2005Q2

REPORT INFORMATION
  Report Type: 
  Country: None (occurrence: None)
  Receive Date: 20050506
  Receipt Date: 20050425
  Transmission Date: 20051028
  Serious: Yes (Hospitalization)
  Sender: FDA-Public Use
  Company Number: 05P-056-0298500-00

PATIENT
  Age: 46 Year
  Sex: Female

DRUGS (2)
  1. RITONAVIR SOFT GELATIN CAPSULES (RITONAVIR) (RITONAVIR) [Suspect]
     Indication: HIV INFECTION
     Dosage: PER ORAL
     Route: 048
  2. TIPRANAVIR [Concomitant]

REACTIONS (1)
  - PULMONARY HYPERTENSION [None]
